FAERS Safety Report 14831826 (Version 1)
Quarter: 2018Q2

REPORT INFORMATION
  Report Type: Spontaneous
  Country: MX (occurrence: MX)
  Receive Date: 20180408
  Receipt Date: 20180408
  Transmission Date: 20180711
  Serious: Yes (Disabling)
  Sender: FDA-Public Use
  Company Number: None

PATIENT
  Age: 39 Year
  Sex: Female
  Weight: 76 kg

DRUGS (1)
  1. ITRACONAZOL [Suspect]
     Active Substance: ITRACONAZOLE

REACTIONS (6)
  - Fatigue [None]
  - Tinnitus [None]
  - Vision blurred [None]
  - Headache [None]
  - Anaemia [None]
  - Weight increased [None]

NARRATIVE: CASE EVENT DATE: 20180101
